FAERS Safety Report 16405573 (Version 4)
Quarter: 2019Q3

REPORT INFORMATION
  Report Type: Spontaneous
  Country: HU (occurrence: HU)
  Receive Date: 20190607
  Receipt Date: 20190828
  Transmission Date: 20191004
  Serious: Yes (Hospitalization, Other)
  Sender: FDA-Public Use
  Company Number: HU-BRISTOL-MYERS SQUIBB COMPANY-BMS-2019-051548

PATIENT
  Age: 55 Year
  Sex: Male

DRUGS (3)
  1. IBUPROFEN. [Suspect]
     Active Substance: IBUPROFEN
     Indication: POSTOPERATIVE ANALGESIA
     Dosage: UNK
     Route: 065
  2. ASPIRIN. [Suspect]
     Active Substance: ASPIRIN
     Indication: ANTIPLATELET THERAPY
     Dosage: UNK
     Route: 065
  3. WARFARIN SODIUM. [Suspect]
     Active Substance: WARFARIN SODIUM
     Indication: ANTIPLATELET THERAPY
     Dosage: UNK
     Route: 065

REACTIONS (5)
  - Gastrointestinal haemorrhage [Unknown]
  - Peptic ulcer [Unknown]
  - Melaena [Unknown]
  - Anaemia [Unknown]
  - Gastritis erosive [Unknown]
